FAERS Safety Report 4965034-7 (Version None)
Quarter: 2006Q1

REPORT INFORMATION
  Report Type: 
  Country: None (occurrence: None)
  Receive Date: 20060130
  Receipt Date: 20051109
  Transmission Date: 20060701
  Serious: No
  Sender: FDA-Public Use
  Company Number: COT_0255_2005

PATIENT
  Age: 57 Year
  Sex: Female
  Weight: 79.5156 kg

DRUGS (13)
  1. VENTAVIS [Suspect]
     Indication: PULMONARY HYPERTENSION
     Dosage: 5 MCG 7XD IH
     Dates: start: 20050722
  2. TRACLEER [Concomitant]
  3. LASIX [Concomitant]
  4. CARDIZEM [Concomitant]
  5. XANAX [Concomitant]
  6. POTASSIUM [Concomitant]
  7. PROZAC [Concomitant]
  8. MIRAPEX [Concomitant]
  9. DIGOXIN [Concomitant]
  10. PROTONIX [Concomitant]
  11. REGLAN [Concomitant]
  12. VICODIN [Concomitant]
  13. COUMADIN [Concomitant]

REACTIONS (2)
  - DECREASED APPETITE [None]
  - GLOSSODYNIA [None]
